FAERS Safety Report 11633104 (Version 1)
Quarter: 2015Q4

REPORT INFORMATION
  Report Type: Spontaneous
  Country: CN (occurrence: CN)
  Receive Date: 20151015
  Receipt Date: 20151015
  Transmission Date: 20160304
  Serious: Yes (Other)
  Sender: FDA-Public Use
  Company Number: CN-PFIZER INC-2015341505

PATIENT
  Age: 77 Year
  Sex: Male
  Weight: 40 kg

DRUGS (2)
  1. ZOLOFT [Suspect]
     Active Substance: SERTRALINE HYDROCHLORIDE
     Indication: DEPRESSION
     Dosage: 1 TABLET, 1X/DAY
     Route: 048
     Dates: start: 20150508, end: 20150508
  2. ZYPREXA [Suspect]
     Active Substance: OLANZAPINE
     Indication: DEPRESSION
     Dosage: 0.5 G, 1X/DAY
     Route: 048
     Dates: start: 20150508, end: 20150508

REACTIONS (3)
  - Dizziness [Recovering/Resolving]
  - Tongue paralysis [Recovering/Resolving]
  - Dry mouth [Recovering/Resolving]

NARRATIVE: CASE EVENT DATE: 20150508
